FAERS Safety Report 5604238-7 (Version None)
Quarter: 2008Q1

REPORT INFORMATION
  Report Type: 
  Country: None (occurrence: None)
  Receive Date: 20080128
  Receipt Date: 20080124
  Transmission Date: 20080703
  Serious: Yes (Death, Hospitalization, Other)
  Sender: FDA-Public Use
  Company Number: GB-BRISTOL-MYERS SQUIBB COMPANY-14008858

PATIENT
  Age: 42 Year
  Sex: Male

DRUGS (10)
  1. ABILIFY [Suspect]
     Indication: SCHIZOPHRENIA
     Dosage: DOSE WAS REDUCED TO 5 MG
     Route: 048
     Dates: start: 20071128, end: 20071204
  2. ZOPICLONE [Concomitant]
     Indication: INSOMNIA
     Route: 065
     Dates: start: 20071102, end: 20071204
  3. FLUCLOXACILLIN [Concomitant]
     Route: 042
     Dates: start: 20071214, end: 20071216
  4. PENICILLIN G [Concomitant]
     Route: 042
     Dates: start: 20071214, end: 20071217
  5. LORAZEPAM [Concomitant]
     Indication: AGITATION
     Dosage: 2 DOSES ONLY
     Dates: start: 20071201, end: 20071204
  6. PROCYCLIDINE HYDROCHLORIDE 2MG TAB [Concomitant]
     Indication: EXTRAPYRAMIDAL DISORDER
     Dates: start: 20071202, end: 20071202
  7. AUGMENTIN '250' [Concomitant]
     Indication: INFECTION
     Dosage: 2 DOSES ONLY
     Dates: start: 20071206
  8. CEFUROXIME [Concomitant]
     Route: 042
     Dates: start: 20071210, end: 20071210
  9. METRONIDAZOLE [Concomitant]
     Route: 042
     Dates: start: 20071210, end: 20071210
  10. DANTROLENE SODIUM [Concomitant]
     Route: 042
     Dates: start: 20071210, end: 20071213

REACTIONS (4)
  - DEATH [None]
  - EXTRAPYRAMIDAL DISORDER [None]
  - INAPPROPRIATE ANTIDIURETIC HORMONE SECRETION [None]
  - NEUROLEPTIC MALIGNANT SYNDROME [None]
